FAERS Safety Report 6646683-7 (Version None)
Quarter: 2010Q1

REPORT INFORMATION
  Report Type: 
  Country: None (occurrence: None)
  Receive Date: 20100322
  Receipt Date: 20100322
  Transmission Date: 20100710
  Serious: Yes (Death)
  Sender: FDA-Public Use
  Company Number: None

PATIENT
  Sex: Male
  Weight: 82.7 kg

DRUGS (1)
  1. ORENCIA [Suspect]
     Indication: RHEUMATOID ARTHRITIS
     Dosage: 750MG MONTHLY INTRAVENOUS
     Route: 042
     Dates: start: 20090201, end: 20090701

REACTIONS (3)
  - METASTASES TO LIVER [None]
  - METASTASES TO SPINE [None]
  - METASTATIC NEOPLASM [None]
